FAERS Safety Report 12885463 (Version 1)
Quarter: 2016Q4

REPORT INFORMATION
  Report Type: Spontaneous
  Country: US (occurrence: US)
  Receive Date: 20161026
  Receipt Date: 20161026
  Transmission Date: 20170207
  Serious: Yes (Other)
  Sender: FDA-Public Use
  Company Number: None

PATIENT
  Age: 59 Year
  Sex: Male
  Weight: 74.39 kg

DRUGS (8)
  1. SIMVASTATIN 10 MG TABLET [Suspect]
     Active Substance: SIMVASTATIN
     Indication: BLOOD CHOLESTEROL
     Dosage: SIMVASTATIN - 1 TAB AT EVENEING - PO
     Route: 048
     Dates: start: 20161007, end: 20161012
  2. VITAMIN B [Concomitant]
     Active Substance: VITAMIN B
  3. SIMVASTATIN 10 MG TABLET [Suspect]
     Active Substance: SIMVASTATIN
     Indication: MYOCARDIAL INFARCTION
     Dosage: SIMVASTATIN - 1 TAB AT EVENEING - PO
     Route: 048
     Dates: start: 20161007, end: 20161012
  4. SIMVASTATIN 10 MG TABLET [Suspect]
     Active Substance: SIMVASTATIN
     Indication: CEREBROVASCULAR ACCIDENT
     Dosage: SIMVASTATIN - 1 TAB AT EVENEING - PO
     Route: 048
     Dates: start: 20161007, end: 20161012
  5. BENZATROPINE [Concomitant]
     Active Substance: BENZTROPINE
  6. RISPERIDONE. [Concomitant]
     Active Substance: RISPERIDONE
  7. METFORMIN [Concomitant]
     Active Substance: METFORMIN HYDROCHLORIDE
  8. CLONAZEPAM. [Concomitant]
     Active Substance: CLONAZEPAM

REACTIONS (1)
  - Blood glucose increased [None]

NARRATIVE: CASE EVENT DATE: 20161012
